FAERS Safety Report 10547393 (Version 2)
Quarter: 2014Q4

REPORT INFORMATION
  Report Type: Spontaneous
  Country: US (occurrence: None)
  Receive Date: 20141023
  Receipt Date: 20141215
  Transmission Date: 20150529
  Serious: Yes (Life-Threatening)
  Sender: FDA-Public Use
  Company Number: 54973 AE # 1574

PATIENT
  Age: 9 Month
  Sex: Female

DRUGS (5)
  1. BABY TEETHING [Suspect]
     Active Substance: ARABICA COFFEE BEAN\ATROPA BELLADONNA\CALCIUM PHOSPHATE\CHAMOMILE
     Indication: TEETHING
     Dosage: 2 TABLETS ORALLY
     Route: 048
  2. IBUPROFEN. [Concomitant]
     Active Substance: IBUPROFEN
  3. ADVIL [Suspect]
     Active Substance: IBUPROFEN
  4. AMOXICILLIN. [Concomitant]
     Active Substance: AMOXICILLIN
  5. BABY ORAJEL [Concomitant]

REACTIONS (11)
  - Febrile convulsion [None]
  - Vomiting [None]
  - Local swelling [None]
  - Head banging [None]
  - Viral infection [None]
  - Abnormal behaviour [None]
  - Musculoskeletal stiffness [None]
  - Haemorrhage [None]
  - Eye movement disorder [None]
  - Apnoea [None]
  - Screaming [None]

NARRATIVE: CASE EVENT DATE: 201405
